FAERS Safety Report 6028753-X (Version None)
Quarter: 2009Q1

REPORT INFORMATION
  Report Type: 
  Country: None (occurrence: None)
  Receive Date: 20090106
  Receipt Date: 20081230
  Transmission Date: 20090719
  Serious: Yes (Hospitalization)
  Sender: FDA-Public Use
  Company Number: A0757912A

PATIENT
  Age: 74 Year
  Sex: Female
  Weight: 106.1 kg

DRUGS (11)
  1. MELPHALAN [Suspect]
     Indication: MULTIPLE MYELOMA
     Route: 048
     Dates: start: 20081021
  2. VELCADE [Suspect]
     Indication: MULTIPLE MYELOMA
     Route: 042
     Dates: start: 20081021
  3. PREDNISONE [Concomitant]
     Route: 048
  4. COZAAR [Concomitant]
     Dates: start: 20081009
  5. ANTIBIOTICS [Concomitant]
     Route: 061
     Dates: end: 20081020
  6. DULCOLAX [Concomitant]
     Dates: start: 20081009
  7. NEXIUM [Concomitant]
     Dates: start: 20081011
  8. ACYCLOVIR [Concomitant]
     Dates: start: 20081019
  9. TYLENOL (CAPLET) [Concomitant]
  10. ASPIRIN [Concomitant]
     Dates: end: 20081020
  11. CIPRO [Concomitant]
     Dates: start: 20081104, end: 20081106

REACTIONS (1)
  - INFECTION [None]
